FAERS Safety Report 6823950-5 (Version None)
Quarter: 2010Q3

REPORT INFORMATION
  Report Type: 
  Country: None (occurrence: None)
  Receive Date: 20100708
  Receipt Date: 20060922
  Transmission Date: 20110219
  Serious: No
  Sender: FDA-Public Use
  Company Number: US-PFIZER INC-2006116243

PATIENT
  Sex: Female
  Weight: 81.65 kg

DRUGS (3)
  1. CHANTIX [Suspect]
     Indication: SMOKING CESSATION THERAPY
     Route: 048
     Dates: start: 20060901
  2. PREVACID [Concomitant]
  3. TRICOR [Concomitant]

REACTIONS (5)
  - ABDOMINAL DISCOMFORT [None]
  - ABNORMAL DREAMS [None]
  - CONSTIPATION [None]
  - WEIGHT INCREASED [None]
  - WITHDRAWAL SYNDROME [None]
